FAERS Safety Report 12815163 (Version 1)
Quarter: 2016Q4

REPORT INFORMATION
  Report Type: Spontaneous
  Country: US (occurrence: US)
  Receive Date: 20161005
  Receipt Date: 20161005
  Transmission Date: 20170207
  Serious: No
  Sender: FDA-Public Use
  Company Number: US-AMGEN-USASP2015139478

PATIENT
  Age: 91 Year
  Sex: Female

DRUGS (1)
  1. PROLIA [Suspect]
     Active Substance: DENOSUMAB
     Indication: BONE DENSITY DECREASED
     Dosage: UNK
     Route: 065
     Dates: start: 201601

REACTIONS (8)
  - Osteoarthritis [Not Recovered/Not Resolved]
  - Fatigue [Unknown]
  - Asthenia [Unknown]
  - Fibromyalgia [Not Recovered/Not Resolved]
  - Arthritis [Unknown]
  - Dyspnoea [Recovered/Resolved]
  - Myalgia [Unknown]
  - Pain [Unknown]

NARRATIVE: CASE EVENT DATE: 201512
